FAERS Safety Report 4786158-3 (Version None)
Quarter: 2005Q4

REPORT INFORMATION
  Report Type: 
  Country: None (occurrence: None)
  Receive Date: 20051003
  Receipt Date: 20050921
  Transmission Date: 20060501
  Serious: Yes (Disabling)
  Sender: FDA-Public Use
  Company Number: PHEH2005US10511

PATIENT
  Age: 65 Year
  Sex: Male

DRUGS (4)
  1. GLEEVEC [Suspect]
     Indication: CHRONIC MYELOID LEUKAEMIA
  2. PROCRIT [Suspect]
     Indication: ANAEMIA OF MALIGNANT DISEASE
     Dosage: 40000 IU, QW
     Route: 058
     Dates: start: 20050823
  3. LIPITOR [Concomitant]
     Dosage: 10 MG, UNK
  4. DOXAZOSIN [Concomitant]

REACTIONS (4)
  - ABASIA [None]
  - ANAEMIA OF MALIGNANT DISEASE [None]
  - JOINT SWELLING [None]
  - PAIN IN EXTREMITY [None]
